FAERS Safety Report 4698239-3 (Version None)
Quarter: 2005Q2

REPORT INFORMATION
  Report Type: 
  Country: None (occurrence: None)
  Receive Date: 20050621
  Receipt Date: 20050608
  Transmission Date: 20051028
  Serious: Yes (Hospitalization, Other)
  Sender: FDA-Public Use
  Company Number: 2004117619

PATIENT
  Sex: Male
  Weight: 104.3273 kg

DRUGS (9)
  1. CELEBREX [Suspect]
     Indication: ARTHRALGIA
     Dosage: 200 MG (200 MG, 1 IN 1 D), ORAL
     Route: 048
  2. PLAVIX [Suspect]
     Indication: ILL-DEFINED DISORDER
     Dates: start: 20050101, end: 20050101
  3. WARFARIN SODIUM [Suspect]
     Indication: ILL-DEFINED DISORDER
  4. ACETYLSALICYLIC ACID SRT [Suspect]
     Indication: ILL-DEFINED DISORDER
     Dosage: ORAL
     Route: 048
  5. VALSARTAN [Concomitant]
  6. TERAZOSIN (TERAZOSIN) [Concomitant]
  7. HYDROCHLOROTHIAZIDE [Concomitant]
  8. POTASSIUM (POTASSIUM) [Concomitant]
  9. LIPITOR [Concomitant]

REACTIONS (12)
  - ANGINA PECTORIS [None]
  - ARTHRALGIA [None]
  - ASTHENIA [None]
  - CARDIAC VALVE DISEASE [None]
  - CONDITION AGGRAVATED [None]
  - CORONARY ARTERY OCCLUSION [None]
  - FAECES DISCOLOURED [None]
  - GASTROINTESTINAL DISORDER [None]
  - HAEMORRHAGE [None]
  - PAIN [None]
  - PAIN IN EXTREMITY [None]
  - VASCULAR CALCIFICATION [None]
